FAERS Safety Report 8850169 (Version 1)
Quarter: 2012Q4

REPORT INFORMATION
  Report Type: 
  Country: NO (occurrence: NO)
  Receive Date: 20121019
  Receipt Date: 20121019
  Transmission Date: 20130627
  Serious: Yes (Disabling)
  Sender: FDA-Public Use
  Company Number: NO-GLAXOSMITHKLINE-B0558923A

PATIENT
  Age: 79 Year
  Sex: Female

DRUGS (6)
  1. SEROXAT [Suspect]
     Indication: DEPRESSION
     Route: 048
     Dates: start: 19990917, end: 19991015
  2. ALBYL-E [Concomitant]
     Dosage: 75MG Per day
     Route: 048
  3. LEVAXIN [Concomitant]
     Dosage: 100MG Per day
     Route: 048
  4. AMLODIPIN [Concomitant]
     Dosage: 10MG Per day
     Route: 048
  5. VALIUM [Concomitant]
     Indication: ANXIETY
     Dosage: 5MG Per day
     Route: 048
  6. PARACET [Concomitant]
     Dosage: 500MG Twice per day
     Route: 048

REACTIONS (4)
  - Dizziness [Not Recovered/Not Resolved]
  - Dyskinesia [Not Recovered/Not Resolved]
  - Back pain [Not Recovered/Not Resolved]
  - Myalgia [Not Recovered/Not Resolved]
